FAERS Safety Report 5287356-5 (Version None)
Quarter: 2007Q1

REPORT INFORMATION
  Report Type: 
  Country: None (occurrence: None)
  Receive Date: 20070116
  Receipt Date: 20061127
  Transmission Date: 20070707
  Serious: No
  Sender: FDA-Public Use
  Company Number: 2006SP004158

PATIENT
  Age: 63 Year
  Sex: Male
  Weight: 89.3586 kg

DRUGS (6)
  1. LUNESTA [Suspect]
     Indication: INSOMNIA
     Dosage: SEE IMAGE
     Route: 048
     Dates: start: 20050501, end: 20050101
  2. LUNESTA [Suspect]
     Indication: INSOMNIA
     Dosage: SEE IMAGE
     Route: 048
     Dates: start: 20050101, end: 20050901
  3. SYNTHROID [Concomitant]
  4. ATORVASTATIN CALCIUM [Concomitant]
  5. LAMOTRIGINE [Concomitant]
  6. VALIUM [Concomitant]

REACTIONS (2)
  - HOMICIDAL IDEATION [None]
  - SUICIDAL IDEATION [None]
